FAERS Safety Report 5505226-1 (Version None)
Quarter: 2007Q4

REPORT INFORMATION
  Report Type: 
  Country: None (occurrence: None)
  Receive Date: 20071031
  Receipt Date: 20071018
  Transmission Date: 20080405
  Serious: Yes (Hospitalization, Other)
  Sender: FDA-Public Use
  Company Number: WAES 0709USA02257

PATIENT
  Age: 73 Year
  Sex: Male
  Weight: 94.8018 kg

DRUGS (2)
  1. VORINOSTAT UNK [Suspect]
     Indication: ACUTE MYELOID LEUKAEMIA
     Dosage: 400 MG/DAILY/PO
     Route: 048
     Dates: start: 20070731, end: 20070806
  2. DECITABINE UNK [Suspect]
     Indication: ACUTE MYELOID LEUKAEMIA
     Dosage: 20 MG/M[2]/IV
     Route: 042
     Dates: start: 20070726, end: 20070730

REACTIONS (1)
  - FEBRILE NEUTROPENIA [None]
